FAERS Safety Report 18667782 (Version 1)
Quarter: 2020Q4

REPORT INFORMATION
  Report Type: Spontaneous
  Country: US (occurrence: US)
  Receive Date: 20201228
  Receipt Date: 20201228
  Transmission Date: 20210114
  Serious: Yes (Other)
  Sender: FDA-Public Use
  Company Number: US-AMGEN-USASP2020210013

PATIENT
  Age: 67 Year
  Sex: Female

DRUGS (2)
  1. CAPECITABINE. [Concomitant]
     Active Substance: CAPECITABINE
     Indication: PRODUCT USED FOR UNKNOWN INDICATION
     Dosage: UNK
     Route: 065
  2. PANITUMUMAB [Suspect]
     Active Substance: PANITUMUMAB
     Indication: PANCREATIC MASS
     Dosage: UNK
     Route: 065
     Dates: start: 2019

REACTIONS (4)
  - Bile duct stenosis [Unknown]
  - Liver function test increased [Recovered/Resolved]
  - Adenocarcinoma of colon [Unknown]
  - Off label use [Unknown]

NARRATIVE: CASE EVENT DATE: 2019
